FAERS Safety Report 17925523 (Version 1)
Quarter: 2020Q2

REPORT INFORMATION
  Report Type: Spontaneous
  Country: DE (occurrence: DE)
  Receive Date: 20200623
  Receipt Date: 20200623
  Transmission Date: 20200714
  Serious: Yes (Hospitalization, Other)
  Sender: FDA-Public Use
  Company Number: DE-TEVA-2020-DE-1789055

PATIENT
  Age: 68 Year
  Sex: Male

DRUGS (8)
  1. BUDESONID EASYHALER 0,2MG/DOSIS [Concomitant]
     Dosage: .4 MILLIGRAM DAILY; 0.2 MG, 1-0-1-0
     Route: 055
  2. MOMETASONFUROAT AL 50MIKROGRAMM/SPR?HSTO? [Concomitant]
     Dosage: 50 MICROGRAM DAILY; 1-0-0-0, SPRAY
     Route: 055
  3. FORMOTEROL EASYHALER 12MIKROGRAMM/DOSIS [Concomitant]
     Dosage: 24 MICROGRAM DAILY; 12 MCG, 1-0-1-0
     Route: 055
  4. PREDNISOLONE. [Suspect]
     Active Substance: PREDNISOLONE
     Dosage: 10 MILLIGRAM DAILY;  1-0-0-0
  5. CANDESARTAN. [Concomitant]
     Active Substance: CANDESARTAN
     Dosage: 16 MILLIGRAM DAILY; 0-0-0-1
  6. TORASEMID [Concomitant]
     Active Substance: TORSEMIDE
     Dosage: 10 MILLIGRAM DAILY; 1-0-0-0
  7. AMLODIPIN [Concomitant]
     Active Substance: AMLODIPINE BESYLATE
     Dosage: 5 MILLIGRAM DAILY; 1-0-0-0
  8. SALBUTAMOL [Concomitant]
     Active Substance: ALBUTEROL
     Dosage: NK MCG, IF NECESSARY
     Route: 055

REACTIONS (1)
  - Deep vein thrombosis [Unknown]

NARRATIVE: CASE EVENT DATE: 202005
